FAERS Safety Report 5925645-9 (Version None)
Quarter: 2008Q4

REPORT INFORMATION
  Report Type: 
  Country: None (occurrence: None)
  Receive Date: 20081016
  Receipt Date: 20081002
  Transmission Date: 20090506
  Serious: Yes (Other)
  Sender: FDA-Public Use
  Company Number: DSA_32370_2008

PATIENT
  Age: 81 Year
  Sex: Male

DRUGS (7)
  1. ENALAPRIL MALEATE AND HYDROCHLOROTHIAZIDE [Suspect]
     Indication: HYPERTENSION
     Dosage: (1 DF QD, 10-6.25 MG ORAL)
     Route: 048
     Dates: start: 20050101, end: 20080617
  2. AMILORIDE HCL AND HYDROCHLOROTHIAZIDE [Suspect]
     Indication: HYPERTENSION
     Dosage: (1 DF QD, 5+50 MG ORAL)
     Route: 048
     Dates: start: 20050101, end: 20080617
  3. ASPIRIN [Concomitant]
  4. LOFTYL [Concomitant]
  5. ANSIMAR [Concomitant]
  6. FORMOTEROL FUMARATE [Concomitant]
  7. SODIUM NITROPRUSSIDE [Concomitant]

REACTIONS (2)
  - HYPOCHLORAEMIA [None]
  - HYPONATRAEMIA [None]
